FAERS Safety Report 20617572 (Version 1)
Quarter: 2022Q1

REPORT INFORMATION
  Report Type: Report from Study
  Country: FR (occurrence: FR)
  Receive Date: 20220321
  Receipt Date: 20220321
  Transmission Date: 20220424
  Serious: Yes (Hospitalization, Other)
  Sender: FDA-Public Use
  Company Number: FR-Boehringer Ingelheim GmbH, Germany-2014-BI-49958II

PATIENT
  Age: 73 Year
  Sex: Female

DRUGS (11)
  1. NINTEDANIB [Suspect]
     Active Substance: NINTEDANIB
     Indication: Fallopian tube cancer
     Dates: start: 20140716, end: 20140923
  2. NINTEDANIB [Suspect]
     Active Substance: NINTEDANIB
     Indication: Ovarian cancer
  3. NINTEDANIB [Suspect]
     Active Substance: NINTEDANIB
     Indication: Malignant peritoneal neoplasm
  4. NINTEDANIB [Suspect]
     Active Substance: NINTEDANIB
     Indication: Product used for unknown indication
  5. PACLITAXEL [Concomitant]
     Active Substance: PACLITAXEL
     Indication: Ovarian cancer
     Route: 065
     Dates: start: 20140715, end: 20140805
  6. PACLITAXEL [Concomitant]
     Active Substance: PACLITAXEL
     Indication: Fallopian tube cancer
  7. PACLITAXEL [Concomitant]
     Active Substance: PACLITAXEL
     Indication: Malignant peritoneal neoplasm
  8. CARBOPLATIN [Concomitant]
     Active Substance: CARBOPLATIN
     Indication: Ovarian cancer
     Route: 065
     Dates: start: 20140715, end: 20140805
  9. CARBOPLATIN [Concomitant]
     Active Substance: CARBOPLATIN
     Indication: Fallopian tube cancer
  10. CARBOPLATIN [Concomitant]
     Active Substance: CARBOPLATIN
     Indication: Malignant peritoneal neoplasm
  11. IRBESARTAN [Concomitant]
     Active Substance: IRBESARTAN
     Indication: Product used for unknown indication
     Route: 048

REACTIONS (1)
  - Deep vein thrombosis [Recovered/Resolved]

NARRATIVE: CASE EVENT DATE: 20140924
